FAERS Safety Report 19948934 (Version 3)
Quarter: 2021Q4

REPORT INFORMATION
  Report Type: Spontaneous
  Country: AU (occurrence: AU)
  Receive Date: 20211013
  Receipt Date: 20211213
  Transmission Date: 20220303
  Serious: Yes (Other)
  Sender: FDA-Public Use
  Company Number: AU-NOVARTISPH-NVSC2021AU233188

PATIENT
  Sex: Male

DRUGS (11)
  1. MYCOPHENOLATE MOFETIL [Suspect]
     Active Substance: MYCOPHENOLATE MOFETIL
     Indication: Chronic graft versus host disease
     Dosage: UNK UNK, BID
     Route: 065
  2. MYCOPHENOLATE MOFETIL [Suspect]
     Active Substance: MYCOPHENOLATE MOFETIL
     Dosage: UNK(VARIABLE)
     Route: 048
     Dates: start: 2018
  3. CYCLOSPORINE [Suspect]
     Active Substance: CYCLOSPORINE
     Indication: Chronic graft versus host disease
     Dosage: UNK UNK, BID
     Route: 065
  4. CYCLOSPORINE [Suspect]
     Active Substance: CYCLOSPORINE
     Dosage: UNK(VARIABLE)
     Route: 048
     Dates: start: 2017
  5. CYCLOSPORINE [Suspect]
     Active Substance: CYCLOSPORINE
     Dosage: UNK(VARIABLE)
     Route: 048
     Dates: start: 2020
  6. POSACONAZOLE [Suspect]
     Active Substance: POSACONAZOLE
     Indication: Chronic graft versus host disease
     Dosage: UNK UNK, BID
     Route: 065
  7. POSACONAZOLE [Suspect]
     Active Substance: POSACONAZOLE
     Dosage: 300 MG (CYP3A4 STRONG INHIBITORS)
     Route: 065
  8. POSACONAZOLE [Suspect]
     Active Substance: POSACONAZOLE
     Dosage: 300 MG (CYP2C9 AND CYP3A4 INHIBITORS)
     Route: 065
  9. POSACONAZOLE [Suspect]
     Active Substance: POSACONAZOLE
     Dosage: 300 MG OTHER (DAILY)
     Route: 065
  10. PREDNISOLONE [Suspect]
     Active Substance: PREDNISOLONE
     Indication: Chronic graft versus host disease
     Dosage: UNK UNK, BID
     Route: 065
  11. IBRUTINIB [Suspect]
     Active Substance: IBRUTINIB
     Indication: Chronic graft versus host disease
     Dosage: UNK UNK, BID
     Route: 065

REACTIONS (15)
  - Haemorrhage [Unknown]
  - Condition aggravated [Unknown]
  - Glaucoma [Recovering/Resolving]
  - Vision blurred [Unknown]
  - Cataract [Recovering/Resolving]
  - Myositis [Recovering/Resolving]
  - Osteoporosis [Recovering/Resolving]
  - Chronic graft versus host disease in eye [Unknown]
  - Chronic graft versus host disease [Unknown]
  - Chronic graft versus host disease in liver [Unknown]
  - Chronic graft versus host disease in skin [Unknown]
  - Mobility decreased [Unknown]
  - Pain [Unknown]
  - Tendonitis [Unknown]
  - Toxicity to various agents [Unknown]

NARRATIVE: CASE EVENT DATE: 20170101
